FAERS Safety Report 6403338-1 (Version None)
Quarter: 2009Q4

REPORT INFORMATION
  Report Type: 
  Country: None (occurrence: None)
  Receive Date: 20091016
  Receipt Date: 20091007
  Transmission Date: 20100525
  Serious: Yes (Disabling)
  Sender: FDA-Public Use
  Company Number: NZ-ASTRAZENECA-2009SE18883

PATIENT
  Sex: Male

DRUGS (3)
  1. BUDESONIDE [Suspect]
     Indication: ASTHMA
     Route: 055
  2. BECLOMETHASONE DIPROPIONATE [Suspect]
     Indication: ASTHMA
     Route: 055
  3. FLUTICASONE PROPIONATE [Suspect]
     Indication: ASTHMA
     Route: 055

REACTIONS (3)
  - PURPURA [None]
  - SKIN ATROPHY [None]
  - SKIN FRAGILITY [None]
